FAERS Safety Report 6820115-8 (Version None)
Quarter: 2010Q3

REPORT INFORMATION
  Report Type: 
  Country: None (occurrence: None)
  Receive Date: 20100707
  Receipt Date: 20100625
  Transmission Date: 20110219
  Serious: Yes (Other)
  Sender: FDA-Public Use
  Company Number: US-JNJCH-2010004639

PATIENT
  Age: 55 Year
  Sex: Male
  Weight: 108.9 kg

DRUGS (17)
  1. BENADRYL [Suspect]
     Indication: HYPERSENSITIVITY
     Dosage: TEXT:ONE EVERY SIX TO EIGHT HOURS
     Route: 048
     Dates: start: 20090801, end: 20100101
  2. LANTUS [Concomitant]
     Indication: DIABETES MELLITUS
     Dosage: TEXT:120 UNITS NIGHTLY
     Route: 065
  3. HUMALOG [Concomitant]
     Indication: DIABETES MELLITUS
     Dosage: TEXT:15 OR 150 UNITS FOUR TIMES DAILY
     Route: 065
  4. POTASSIUM CHLORIDE [Concomitant]
     Indication: PRODUCT USED FOR UNKNOWN INDICATION
     Dosage: TEXT:8MEQS 3XS PER DAILY
     Route: 065
  5. OMEPRAZOLE [Concomitant]
     Indication: PRODUCT USED FOR UNKNOWN INDICATION
     Dosage: TEXT:40MG UNSPECIFIED
     Route: 048
  6. ROBAXIN [Concomitant]
     Indication: PRODUCT USED FOR UNKNOWN INDICATION
     Dosage: TEXT:750 MG
     Route: 065
  7. CADUET [Concomitant]
     Indication: CARDIAC DISORDER
     Dosage: TEXT:10/80MG UNSPECIFIED
     Route: 048
  8. FLOMAX [Concomitant]
     Indication: PRODUCT USED FOR UNKNOWN INDICATION
     Dosage: TEXT:0.4MG UNSPECIFIED
     Route: 048
  9. LYRICA [Concomitant]
     Indication: PRODUCT USED FOR UNKNOWN INDICATION
     Dosage: TEXT:75MG UNSPECIFIED
     Route: 048
  10. ISOSORBIDE DINITRATE [Concomitant]
     Indication: CARDIAC DISORDER
     Dosage: TEXT:20MG UNSPECIFIED
     Route: 048
  11. PLAVIX [Concomitant]
     Indication: CARDIAC DISORDER
     Dosage: TEXT:75MG ONE DAILY
     Route: 048
  12. XANAX [Concomitant]
     Indication: PRODUCT USED FOR UNKNOWN INDICATION
     Dosage: TEXT:0.5MG UNSPECIFIED
     Route: 065
  13. BENICAR [Concomitant]
     Indication: HYPERTENSION
     Dosage: TEXT:20MG ONE DAILY
     Route: 048
  14. TRICOR [Concomitant]
     Indication: PRODUCT USED FOR UNKNOWN INDICATION
     Dosage: TEXT:145MG UNSPECIFIED
     Route: 048
  15. NITROGLYCERIAN [Concomitant]
     Indication: PRODUCT USED FOR UNKNOWN INDICATION
     Dosage: TEXT:METERDOSE AS NEEDED
     Route: 065
  16. LOWASA [Concomitant]
     Indication: PRODUCT USED FOR UNKNOWN INDICATION
     Dosage: TEXT:ONE GRAM
     Route: 065
  17. ALBUTEROL [Concomitant]
     Indication: CHRONIC OBSTRUCTIVE PULMONARY DISEASE
     Dosage: TEXT:UNSPECIFIED AS NEEDED
     Route: 055

REACTIONS (6)
  - DEHYDRATION [None]
  - MALAISE [None]
  - NAUSEA [None]
  - PRODUCT QUALITY ISSUE [None]
  - VOMITING [None]
  - WEIGHT DECREASED [None]
